FAERS Safety Report 12800134 (Version 2)
Quarter: 2017Q1

REPORT INFORMATION
  Report Type: Spontaneous
  Country: US (occurrence: US)
  Receive Date: 20160930
  Receipt Date: 20170130
  Transmission Date: 20170428
  Serious: Yes (Other)
  Sender: FDA-Public Use
  Company Number: US-BRISTOL-MYERS SQUIBB COMPANY-BMS-2016-077985

PATIENT
  Age: 83 Year
  Sex: Male

DRUGS (3)
  1. LOSARTAN. [Concomitant]
     Active Substance: LOSARTAN
     Indication: PRODUCT USED FOR UNKNOWN INDICATION
     Dosage: 100 MG, QD
     Route: 065
  2. ELIQUIS [Suspect]
     Active Substance: APIXABAN
     Indication: PRODUCT USED FOR UNKNOWN INDICATION
     Dosage: 2.5 MG, BID
     Route: 048
  3. VERAPAMIL [Concomitant]
     Active Substance: VERAPAMIL HYDROCHLORIDE
     Indication: PRODUCT USED FOR UNKNOWN INDICATION
     Dosage: 40 MG, TID
     Route: 065

REACTIONS (10)
  - Cerebral infarction [Unknown]
  - Fall [Unknown]
  - Nail bed bleeding [Unknown]
  - Nail operation [Unknown]
  - Gait disturbance [Unknown]
  - Pain in extremity [Unknown]
  - Haemorrhagic stroke [Unknown]
  - Hypertension [Unknown]
  - Haemorrhage [Unknown]
  - Purpura [Unknown]
